FAERS Safety Report 6564730-8 (Version None)
Quarter: 2010Q1

REPORT INFORMATION
  Report Type: 
  Country: None (occurrence: None)
  Receive Date: 20100201
  Receipt Date: 20100121
  Transmission Date: 20100710
  Serious: Yes (Other)
  Sender: FDA-Public Use
  Company Number: GB-ASTRAZENECA-2009SE27986

PATIENT
  Age: 59 Year
  Sex: Female

DRUGS (9)
  1. QUETIAPINE [Suspect]
     Indication: PSYCHOTIC DISORDER
     Dosage: WITHIN BNF LIMIT
     Route: 048
     Dates: start: 20041101, end: 20070401
  2. QUETIAPINE [Suspect]
     Route: 048
     Dates: start: 20070401
  3. OMEPRAZOLE [Concomitant]
     Indication: GASTROOESOPHAGEAL REFLUX DISEASE
     Route: 048
  4. LEVOTHYROXINE SODIUM [Concomitant]
     Route: 048
  5. VALPROATE SODIUM [Concomitant]
     Indication: EPILEPSY
     Route: 048
     Dates: start: 20061101
  6. CO-CODAMOL [Concomitant]
     Indication: ANALGESIC THERAPY
     Dosage: 4 TABLETS 30/500
     Route: 048
  7. ZOLPIDEM [Concomitant]
     Indication: INSOMNIA
     Route: 048
  8. CITALOPRAM [Concomitant]
     Indication: DEPRESSION
     Route: 048
     Dates: start: 20020801
  9. DOCUSATE [Concomitant]
     Indication: CONSTIPATION
     Route: 048

REACTIONS (2)
  - HYPOTHYROIDISM [None]
  - LEUKOPENIA [None]
